FAERS Safety Report 14638395 (Version 2)
Quarter: 2018Q2

REPORT INFORMATION
  Report Type: Spontaneous
  Country: US (occurrence: US)
  Receive Date: 20180314
  Receipt Date: 20180521
  Transmission Date: 20180711
  Serious: No
  Sender: FDA-Public Use
  Company Number: US-PFIZER INC-2016481048

PATIENT
  Age: 87 Year
  Sex: Male

DRUGS (47)
  1. SYLATRON [Concomitant]
     Active Substance: PEGINTERFERON ALFA-2B
     Dosage: 400 UG, UNK
     Route: 042
  2. SYMAX [Concomitant]
     Active Substance: HYOSCYAMINE SULFATE
     Dosage: 0.125 MG, UNK
  3. SYNJARDY XR [Concomitant]
     Active Substance: EMPAGLIFLOZIN\METFORMIN HYDROCHLORIDE
     Dosage: UNK
  4. SYMLINPEN [Concomitant]
     Active Substance: PRAMLINTIDE ACETATE
     Dosage: UNK
     Route: 058
  5. SYLATRON [Concomitant]
     Active Substance: PEGINTERFERON ALFA-2B
     Dosage: 600 UG, UNK
     Route: 058
  6. SYNJARDY [Concomitant]
     Active Substance: EMPAGLIFLOZIN\METFORMIN HYDROCHLORIDE
     Dosage: UNK
  7. SYNJARDY [Concomitant]
     Active Substance: EMPAGLIFLOZIN\METFORMIN HYDROCHLORIDE
     Dosage: UNK
  8. MEKINIST [Concomitant]
     Active Substance: TRAMETINIB DIMETHYL SULFOXIDE
     Dosage: 2 MG, UNK
  9. SUTENT [Suspect]
     Active Substance: SUNITINIB MALATE
     Dosage: 25 MG, UNK
  10. SYEDA [Concomitant]
     Active Substance: DROSPIRENONE\ETHINYL ESTRADIOL
     Dosage: UNK
  11. SYNAGIS [Concomitant]
     Active Substance: PALIVIZUMAB
     Dosage: UNK
     Route: 030
  12. SYNERCID [Concomitant]
     Active Substance: DALFOPRISTIN\QUINUPRISTIN
     Dosage: 500 MG, UNK
     Route: 042
  13. SYNJARDY XR [Concomitant]
     Active Substance: EMPAGLIFLOZIN\METFORMIN HYDROCHLORIDE
     Dosage: UNK
  14. SYNTHROID [Concomitant]
     Active Substance: LEVOTHYROXINE SODIUM
     Dosage: 112 UG, UNK
  15. SYNTHROID [Concomitant]
     Active Substance: LEVOTHYROXINE SODIUM
     Dosage: 175 UG, UNK
  16. SYNTHROID [Concomitant]
     Active Substance: LEVOTHYROXINE SODIUM
     Dosage: 25 UG, UNK
  17. SYLATRON [Concomitant]
     Active Substance: PEGINTERFERON ALFA-2B
     Dosage: 300 UG, UNK
     Route: 058
  18. SYNJARDY [Concomitant]
     Active Substance: EMPAGLIFLOZIN\METFORMIN HYDROCHLORIDE
     Dosage: UNK
  19. SYNJARDY XR [Concomitant]
     Active Substance: EMPAGLIFLOZIN\METFORMIN HYDROCHLORIDE
     Dosage: UNK
  20. SYNTHROID [Concomitant]
     Active Substance: LEVOTHYROXINE SODIUM
     Dosage: 100 UG, UNK
  21. SUSTIVA [Concomitant]
     Active Substance: EFAVIRENZ
     Dosage: 600 MG, UNK
  22. SUTENT [Suspect]
     Active Substance: SUNITINIB MALATE
     Indication: METASTATIC RENAL CELL CARCINOMA
     Dosage: 37.5 MG, CYCLIC (28 DAYS ON/14 DAYS OFF)
     Route: 048
  23. SUTENT [Suspect]
     Active Substance: SUNITINIB MALATE
     Dosage: 50 MG, UNK
  24. SYLATRON [Concomitant]
     Active Substance: PEGINTERFERON ALFA-2B
     Dosage: 200 UG, UNK
     Route: 058
  25. SYNJARDY [Concomitant]
     Active Substance: EMPAGLIFLOZIN\METFORMIN HYDROCHLORIDE
     Dosage: UNK
  26. SYNRIBO [Concomitant]
     Active Substance: OMACETAXINE MEPESUCCINATE
     Dosage: 3.5 MG, UNK
     Route: 058
  27. SYNTHROID [Concomitant]
     Active Substance: LEVOTHYROXINE SODIUM
     Dosage: 125 UG, UNK
  28. SYNTHROID [Concomitant]
     Active Substance: LEVOTHYROXINE SODIUM
     Dosage: 137 UG, UNK
  29. SYNAGIS [Concomitant]
     Active Substance: PALIVIZUMAB
     Dosage: UNK
     Route: 030
  30. SULFAMETHOXAZOLE [Concomitant]
     Active Substance: SULFAMETHOXAZOLE
     Dosage: UNK
  31. LEVOCETIRIZINE [Concomitant]
     Active Substance: LEVOCETIRIZINE
     Dosage: 5 MG, UNK
  32. IMBRUVICA [Concomitant]
     Active Substance: IBRUTINIB
     Dosage: 140 MG, UNK
  33. MEKINIST [Concomitant]
     Active Substance: TRAMETINIB DIMETHYL SULFOXIDE
     Dosage: 0.5 MG, UNK
  34. SYNAGIS [Concomitant]
     Active Substance: PALIVIZUMAB
     Dosage: UNK
     Route: 045
  35. SUSTIVA [Concomitant]
     Active Substance: EFAVIRENZ
     Dosage: 200 MG, UNK
  36. SUSTIVA [Concomitant]
     Active Substance: EFAVIRENZ
     Dosage: 50 MG, UNK
  37. SYMAX-SL [Concomitant]
     Dosage: 0.125 MG, UNK
     Route: 060
  38. SYMBICORT [Concomitant]
     Active Substance: BUDESONIDE\FORMOTEROL FUMARATE DIHYDRATE
     Dosage: UNK
  39. METHOTREXATE. [Concomitant]
     Active Substance: METHOTREXATE
     Dosage: 2.5 MG, UNK
  40. SYMLINPEN [Concomitant]
     Active Substance: PRAMLINTIDE ACETATE
     Dosage: UNK
     Route: 058
  41. SUTENT [Suspect]
     Active Substance: SUNITINIB MALATE
     Dosage: 12.5 MG, UNK
  42. SYLATRON [Concomitant]
     Active Substance: PEGINTERFERON ALFA-2B
     Dosage: 100 UG, UNK
     Route: 042
  43. SYMAX SR [Concomitant]
     Active Substance: HYOSCYAMINE SULFATE
     Dosage: 0.375 MG, UNK
  44. SYMBICORT [Concomitant]
     Active Substance: BUDESONIDE\FORMOTEROL FUMARATE DIHYDRATE
     Dosage: UNK
  45. SYNJARDY XR [Concomitant]
     Active Substance: EMPAGLIFLOZIN\METFORMIN HYDROCHLORIDE
     Dosage: UNK
  46. SYNTHROID [Concomitant]
     Active Substance: LEVOTHYROXINE SODIUM
     Dosage: 150 UG, UNK
  47. SYNTHROID [Concomitant]
     Active Substance: LEVOTHYROXINE SODIUM
     Dosage: 200 UG, UNK

REACTIONS (1)
  - Neoplasm progression [Unknown]
